FAERS Safety Report 4772009-X (Version None)
Quarter: 2005Q3

REPORT INFORMATION
  Report Type: 
  Country: None (occurrence: None)
  Receive Date: 20050916
  Receipt Date: 20050907
  Transmission Date: 20060218
  Serious: Yes (Other)
  Sender: FDA-Public Use
  Company Number: PHBS2005DE13375

PATIENT

DRUGS (8)
  1. OXCARBAZEPINE [Suspect]
     Indication: EPILEPSY
     Dosage: 750 MG/D
     Route: 065
  2. OXCARBAZEPINE [Suspect]
     Dosage: 600 MG/D
     Route: 065
  3. CARBAMAZEPINE [Suspect]
     Indication: EPILEPSY
     Dosage: 800 MG/D
     Route: 065
  4. CYCLOSPORINE [Suspect]
     Dosage: 270 MG/D
     Route: 065
  5. CYCLOSPORINE [Suspect]
     Dosage: 290 MG/D
     Route: 065
  6. CYCLOSPORINE [Suspect]
     Dosage: 400 MG/D
     Route: 065
  7. VALPROIC ACID [Concomitant]
     Route: 065
  8. GABAPENTIN [Concomitant]
     Route: 065

REACTIONS (6)
  - BLOOD CREATININE INCREASED [None]
  - BLOOD POTASSIUM ABNORMAL [None]
  - CONVULSION [None]
  - DRUG INTERACTION [None]
  - DRUG LEVEL DECREASED [None]
  - HYPONATRAEMIA [None]
